FAERS Safety Report 24270346 (Version 2)
Quarter: 2024Q3

REPORT INFORMATION
  Report Type: Spontaneous
  Country: US (occurrence: US)
  Receive Date: 20240830
  Receipt Date: 20240830
  Transmission Date: 20241017
  Serious: Yes (Hospitalization)
  Sender: ASTELLAS
  Company Number: US-ASTELLAS-2024-AER-001927

PATIENT
  Age: 72 Year
  Sex: Female

DRUGS (1)
  1. LEXISCAN [Suspect]
     Active Substance: REGADENOSON
     Indication: Cardiac stress test
     Route: 042
     Dates: start: 20240809, end: 20240809

REACTIONS (6)
  - Dysarthria [Unknown]
  - Seizure [Unknown]
  - Muscle twitching [Unknown]
  - Tremor [Unknown]
  - Hypersomnia [Unknown]
  - Fatigue [Unknown]
